FAERS Safety Report 9171514 (Version 1)
Quarter: 2013Q1

REPORT INFORMATION
  Report Type: Report from Study
  Country: FR (occurrence: FR)
  Receive Date: 20130319
  Receipt Date: 20130319
  Transmission Date: 20140127
  Serious: Yes (Death, Hospitalization)
  Sender: FDA-Public Use
  Company Number: FR-ROCHE-1186410

PATIENT
  Sex: Male

DRUGS (5)
  1. BEVACIZUMAB [Suspect]
     Indication: COLON CANCER
     Dosage: LAST DOSE ADMINISTERED 340 MG
     Route: 065
  2. IRINOTECAN [Suspect]
     Indication: COLON CANCER
     Dosage: LAST DOSE ADMINISTERED 330 MG
     Route: 065
  3. FOLINIC ACID [Suspect]
     Indication: COLON CANCER
     Dosage: LAST DOSE ADMINISTERED 775 MG
     Route: 065
  4. 5-FLUOROURACIL [Suspect]
     Indication: COLON CANCER
     Dosage: LAST DOSE ADMINISTERED 740 MG
     Route: 040
  5. TINZAPARIN [Suspect]
     Indication: DEEP VEIN THROMBOSIS
     Route: 065

REACTIONS (1)
  - Large intestinal obstruction [Fatal]
